FAERS Safety Report 5944051-4 (Version None)
Quarter: 2008Q4

REPORT INFORMATION
  Report Type: 
  Country: None (occurrence: None)
  Receive Date: 20081106
  Receipt Date: 20081014
  Transmission Date: 20090506
  Serious: No
  Sender: FDA-Public Use
  Company Number: US-B.I. PHARMACEUTICALS,INC./RIDGEFIELD-2008-BP-10541BP

PATIENT
  Age: 66 Year
  Sex: Male

DRUGS (2)
  1. FLOMAX [Suspect]
     Indication: BENIGN PROSTATIC HYPERPLASIA
     Dosage: .4MG
     Route: 048
     Dates: start: 20071001, end: 20080201
  2. AVODART [Concomitant]
     Indication: BENIGN PROSTATIC HYPERPLASIA

REACTIONS (8)
  - DIZZINESS [None]
  - DYSPNOEA [None]
  - EJACULATION DISORDER [None]
  - FATIGUE [None]
  - FEELING ABNORMAL [None]
  - PRESYNCOPE [None]
  - RHINORRHOEA [None]
  - SOMNOLENCE [None]
